FAERS Safety Report 9887359 (Version 1)
Quarter: 2014Q1

REPORT INFORMATION
  Report Type: Spontaneous
  Country: GB (occurrence: GB)
  Receive Date: 20140211
  Receipt Date: 20140211
  Transmission Date: 20141002
  Serious: Yes (Hospitalization, Other)
  Sender: FDA-Public Use
  Company Number: GB-BRISTOL-MYERS SQUIBB COMPANY-20152468

PATIENT
  Age: 74 Year
  Sex: Female

DRUGS (12)
  1. BYDUREON [Suspect]
     Dosage: BYDUREON 2 MG POWDER AND SOLVENT FOR PROLONGED-RELEASE SUSPENSION FOR INJECTION?JUN/JULY 2013
     Dates: start: 201306
  2. METFORMIN [Concomitant]
  3. GLICLAZIDE [Concomitant]
  4. BISOPROLOL [Concomitant]
  5. CYCLIZINE [Concomitant]
  6. DIGOXIN [Concomitant]
  7. DIHYDROCODEINE [Concomitant]
  8. ENOXAPARIN [Concomitant]
  9. FUROSEMIDE [Concomitant]
  10. LANSOPRAZOLE [Concomitant]
  11. ONDANSETRON [Concomitant]
  12. SODIUM BICARBONATE [Concomitant]

REACTIONS (3)
  - Cardiac disorder [Not Recovered/Not Resolved]
  - Renal impairment [Unknown]
  - Atrial fibrillation [Unknown]
